FAERS Safety Report 9772017 (Version 3)
Quarter: 2014Q1

REPORT INFORMATION
  Report Type: Report from Study
  Country: US (occurrence: US)
  Receive Date: 20131219
  Receipt Date: 20140319
  Transmission Date: 20141002
  Serious: Yes (Other)
  Sender: FDA-Public Use
  Company Number: US-CELGENEUS-163-21880-13121836

PATIENT
  Age: 87 Year
  Sex: Male
  Weight: 77 kg

DRUGS (17)
  1. REVLIMID [Suspect]
     Indication: MANTLE CELL LYMPHOMA
     Route: 048
     Dates: start: 20120809
  2. REVLIMID [Suspect]
     Route: 048
     Dates: start: 20131203, end: 20140304
  3. RITUXIMAB [Suspect]
     Indication: MANTLE CELL LYMPHOMA
     Route: 065
     Dates: end: 20140304
  4. ASPIRIN [Concomitant]
     Indication: THROMBOSIS PROPHYLAXIS
     Dosage: 81 MILLIGRAM
     Route: 048
  5. ATENOLOL [Concomitant]
     Indication: HYPERTROPHIC CARDIOMYOPATHY
     Dosage: 25 MILLIGRAM
     Route: 048
  6. SIMVASTATIN [Concomitant]
     Indication: HYPERCHOLESTEROLAEMIA
     Dosage: 10 MILLIGRAM
     Route: 048
  7. LUTEIN [Concomitant]
     Indication: MACULAR DEGENERATION
     Dosage: 100 MILLIGRAM
     Route: 048
  8. VALACYCLOVIR HCL [Concomitant]
     Indication: HERPES ZOSTER
     Dosage: 500 MILLIGRAM
     Route: 048
     Dates: start: 20120809, end: 201301
  9. VALACYCLOVIR HCL [Concomitant]
     Dosage: 500 MILLIGRAM
     Route: 048
     Dates: start: 20130416
  10. COLACE [Concomitant]
     Indication: CONSTIPATION
     Route: 048
     Dates: start: 20121127
  11. ALLOPURINOL [Concomitant]
     Indication: HYPERURICAEMIA
     Dosage: 300 MILLIGRAM
     Route: 048
     Dates: start: 20120809, end: 20130416
  12. VITAMIN D [Concomitant]
     Indication: VITAMIN D DEFICIENCY
     Dosage: 50,000 UNITS
     Route: 048
     Dates: start: 20120816, end: 20121127
  13. VITAMIN D [Concomitant]
     Dosage: 2000 UNITS
     Route: 048
     Dates: start: 20121127
  14. VITAMIN A [Concomitant]
     Indication: MACULAR DEGENERATION
     Dosage: 10,000 UNITS
     Route: 048
     Dates: start: 20120830, end: 20120906
  15. IBUPROFEN [Concomitant]
     Indication: TUMOUR FLARE
     Route: 048
     Dates: start: 20120809, end: 20120817
  16. IV HYDRATION [Concomitant]
     Indication: DEHYDRATION
     Dosage: 3 LITERS
     Route: 041
     Dates: start: 20120817, end: 20120817
  17. IV HYDRATION [Concomitant]
     Indication: HYPOTENSION

REACTIONS (2)
  - Malignant melanoma in situ [Recovered/Resolved]
  - Neuroendocrine carcinoma of the skin [Not Recovered/Not Resolved]
